FAERS Safety Report 5997257-2 (Version None)
Quarter: 2008Q4

REPORT INFORMATION
  Report Type: 
  Country: None (occurrence: None)
  Receive Date: 20081212
  Receipt Date: 20081015
  Transmission Date: 20090506
  Serious: No
  Sender: FDA-Public Use
  Company Number: US-ABBOTT-08P-163-0486448-00

PATIENT
  Sex: Female

DRUGS (19)
  1. HUMIRA [Suspect]
     Indication: DRUG USE FOR UNKNOWN INDICATION
     Route: 058
  2. FLUCONAZOLE [Concomitant]
     Indication: CANDIDIASIS
     Route: 048
  3. PREDNISONE TAB [Concomitant]
     Indication: DRUG USE FOR UNKNOWN INDICATION
  4. WARFARIN SODIUM [Concomitant]
     Indication: DRUG USE FOR UNKNOWN INDICATION
     Dosage: 2.5MG
     Route: 048
  5. IMIPRAMINE [Concomitant]
     Indication: MUSCLE SPASMS
  6. IMIPRAMINE [Concomitant]
     Indication: FIBROMYALGIA
  7. IMIPRAMINE [Concomitant]
     Indication: DEPRESSION
  8. LEVOTHYROXINE SODIUM [Concomitant]
     Indication: AUTOIMMUNE THYROIDITIS
  9. DIOVAN HCT [Concomitant]
     Indication: DRUG USE FOR UNKNOWN INDICATION
  10. RABEPRAZOLE SODIUM [Concomitant]
     Indication: GASTROOESOPHAGEAL REFLUX DISEASE
  11. BUSPIRONE HCL [Concomitant]
     Indication: DEPRESSION
  12. TOPAMAX [Concomitant]
     Indication: MIGRAINE
  13. TOPAMAX [Concomitant]
     Indication: NEURALGIA
  14. ATORVASTATIN CALCIUM [Concomitant]
     Indication: DRUG USE FOR UNKNOWN INDICATION
  15. METHADONE HCL [Concomitant]
     Indication: PAIN MANAGEMENT
  16. TYLOX [Concomitant]
     Indication: PAIN MANAGEMENT
  17. CARISOPRODOL [Concomitant]
     Indication: DRUG USE FOR UNKNOWN INDICATION
  18. MODAFINIL [Concomitant]
     Indication: DRUG USE FOR UNKNOWN INDICATION
  19. SUMATRIPTAN [Concomitant]
     Indication: MIGRAINE

REACTIONS (3)
  - MOBILITY DECREASED [None]
  - OSTEOARTHRITIS [None]
  - PAIN IN EXTREMITY [None]
